FAERS Safety Report 10207228 (Version 1)
Quarter: 2014Q2

REPORT INFORMATION
  Report Type: Spontaneous
  Country: US (occurrence: US)
  Receive Date: 20140530
  Receipt Date: 20140530
  Transmission Date: 20141212
  Serious: No
  Sender: FDA-Public Use
  Company Number: US-GLAXOSMITHKLINE-A1025556A

PATIENT
  Age: 78 Year
  Sex: Female

DRUGS (6)
  1. VENTOLIN [Suspect]
     Indication: WHEEZING
     Dosage: 1SPR VARIABLE DOSE
     Route: 055
     Dates: start: 201207
  2. SYNTHROID [Concomitant]
  3. ZYRTEC [Concomitant]
  4. VITAMINS [Concomitant]
  5. LORAZEPAM [Concomitant]
  6. BABY ASPIRIN [Concomitant]

REACTIONS (3)
  - Wheezing [Recovering/Resolving]
  - Dyspnoea [Recovering/Resolving]
  - Product quality issue [Unknown]
